FAERS Safety Report 11616883 (Version 4)
Quarter: 2016Q4

REPORT INFORMATION
  Report Type: Report from Study
  Country: ES (occurrence: ES)
  Receive Date: 20151009
  Receipt Date: 20161221
  Transmission Date: 20170206
  Serious: Yes (Hospitalization)
  Sender: FDA-Public Use
  Company Number: ES-JNJFOC-20150506677

PATIENT
  Age: 72 Year
  Sex: Male
  Weight: 82.5 kg

DRUGS (3)
  1. CANAGLIFLOZIN [Suspect]
     Active Substance: CANAGLIFLOZIN
     Route: 048
  2. CANAGLIFLOZIN [Suspect]
     Active Substance: CANAGLIFLOZIN
     Indication: TYPE 2 DIABETES MELLITUS
     Route: 048
     Dates: start: 20140425, end: 20150504
  3. METFORMIN [Concomitant]
     Active Substance: METFORMIN HYDROCHLORIDE
     Dosage: DOSE: 575 (UNIT UNSPECIFIED)
     Route: 065

REACTIONS (2)
  - Septic shock [Recovered/Resolved]
  - Perinephric abscess [Recovered/Resolved]

NARRATIVE: CASE EVENT DATE: 20150507
